FAERS Safety Report 7882809-5 (Version None)
Quarter: 2011Q4

REPORT INFORMATION
  Report Type: 
  Country: None (occurrence: None)
  Receive Date: 20111101
  Receipt Date: 20110620
  Transmission Date: 20120403
  Serious: No
  Sender: FDA-Public Use
  Company Number: US-AMGEN-USASP2011025984

PATIENT
  Sex: Female

DRUGS (13)
  1. ZOLPIDEM [Concomitant]
     Dosage: UNK
  2. VITAMIN D [Concomitant]
  3. TRAMADOL HCL [Concomitant]
     Dosage: UNK
  4. GLIMEPIRIDE [Concomitant]
     Dosage: UNK
  5. ENBREL [Suspect]
     Indication: RHEUMATOID ARTHRITIS
     Dosage: 50 MG, QWK
     Dates: start: 20110301
  6. OXYCODONE HCL [Concomitant]
     Dosage: UNK
  7. CLONAZEPAM [Concomitant]
     Dosage: UNK
  8. HYDROCHLOROTHIAZIDE [Concomitant]
     Dosage: UNK
  9. DILTIAZEM HCL [Concomitant]
     Dosage: UNK
  10. ELMIRON [Concomitant]
     Dosage: UNK
  11. HYDROCODONE BITARTRATE [Concomitant]
     Dosage: UNK
  12. LIDODERM [Concomitant]
  13. NORCO [Concomitant]

REACTIONS (4)
  - JOINT STIFFNESS [None]
  - PARAESTHESIA [None]
  - INJECTION SITE MASS [None]
  - ARTHRALGIA [None]
